FAERS Safety Report 18701713 (Version 1)
Quarter: 2021Q1

REPORT INFORMATION
  Report Type: Spontaneous
  Country: FR (occurrence: FR)
  Receive Date: 20210105
  Receipt Date: 20210105
  Transmission Date: 20210419
  Serious: Yes (Other)
  Sender: FDA-Public Use
  Company Number: FR-ASTRAZENECA-2020SF75011

PATIENT
  Age: 42 Year
  Sex: Female
  Weight: 92 kg

DRUGS (6)
  1. TERALITHE [Suspect]
     Active Substance: LITHIUM CARBONATE
     Indication: SCHIZOPHRENIA
     Route: 048
     Dates: end: 20200727
  2. BACLOFENE [Suspect]
     Active Substance: BACLOFEN
     Indication: ALCOHOLISM
     Route: 048
     Dates: end: 20200727
  3. ZOPICLONE [Suspect]
     Active Substance: ZOPICLONE
     Indication: DEPRESSION
     Dosage: 7.5MG UNKNOWN
     Route: 048
  4. XEROQUEL [Suspect]
     Active Substance: QUETIAPINE FUMARATE
     Indication: SCHIZOPHRENIA
     Dosage: 1.0DF UNKNOWN
     Route: 048
  5. SERESTA [Suspect]
     Active Substance: OXAZEPAM
     Indication: DEPRESSION
     Route: 048
     Dates: end: 20200727
  6. KEPPRA [Suspect]
     Active Substance: LEVETIRACETAM
     Indication: EPILEPSY
     Dosage: 1.0DF UNKNOWN
     Route: 048

REACTIONS (1)
  - Foetal death [Recovered/Resolved with Sequelae]

NARRATIVE: CASE EVENT DATE: 20201013
